FAERS Safety Report 7682247-4 (Version None)
Quarter: 2011Q3

REPORT INFORMATION
  Report Type: 
  Country: None (occurrence: None)
  Receive Date: 20110805
  Receipt Date: 20110726
  Transmission Date: 20111222
  Serious: Yes (Other)
  Sender: FDA-Public Use
  Company Number: 2011SP027356

PATIENT
  Age: 25 Year
  Sex: Female
  Weight: 58 kg

DRUGS (6)
  1. VENLAFAXINE [Concomitant]
  2. LAMOTRIGINE [Concomitant]
  3. MIDAZOLAM HCL [Concomitant]
  4. QUETIAPINE [Concomitant]
  5. NUVARING [Suspect]
     Indication: CONTRACEPTION
     Dosage: QM;VAG
     Route: 067
     Dates: start: 20100101
  6. CLONAZEPAM [Concomitant]

REACTIONS (7)
  - MENSTRUATION DELAYED [None]
  - METRORRHAGIA [None]
  - INAPPROPRIATE SCHEDULE OF DRUG ADMINISTRATION [None]
  - CONFUSIONAL STATE [None]
  - DYSARTHRIA [None]
  - BRADYPHRENIA [None]
  - PULMONARY TUBERCULOSIS [None]
